FAERS Safety Report 7243925-4 (Version None)
Quarter: 2011Q1

REPORT INFORMATION
  Report Type: 
  Country: None (occurrence: None)
  Receive Date: 20110125
  Receipt Date: 20110114
  Transmission Date: 20110831
  Serious: Yes (Hospitalization)
  Sender: FDA-Public Use
  Company Number: B0691646A

PATIENT
  Age: 17 Year
  Sex: Female

DRUGS (3)
  1. IPRATROPIUM BROMIDE [Concomitant]
  2. PARACETAMOL [Concomitant]
  3. ALBUTEROL [Suspect]
     Indication: ASTHMA
     Route: 055

REACTIONS (9)
  - SINUS TACHYCARDIA [None]
  - DYSPNOEA [None]
  - HYPOKALAEMIA [None]
  - HYPERLACTACIDAEMIA [None]
  - LACTIC ACIDOSIS [None]
  - PROLONGED EXPIRATION [None]
  - METABOLIC ACIDOSIS [None]
  - HYPERGLYCAEMIA [None]
  - RESPIRATORY ALKALOSIS [None]
